FAERS Safety Report 5897778-7 (Version None)
Quarter: 2008Q3

REPORT INFORMATION
  Report Type: 
  Country: None (occurrence: None)
  Receive Date: 20080925
  Receipt Date: 20080918
  Transmission Date: 20090109
  Serious: Yes (Other)
  Sender: FDA-Public Use
  Company Number: PHHY2008FR22093

PATIENT
  Age: 53 Year
  Sex: Male

DRUGS (5)
  1. LEPONEX [Suspect]
     Dosage: 400 MG/DAY
     Route: 048
     Dates: start: 20060101
  2. LEPONEX [Suspect]
     Dosage: 200 MG/DAY
     Route: 048
  3. LEPONEX [Suspect]
     Dosage: 800 MG/DAY
  4. LEPONEX [Suspect]
     Dosage: 500 MG/DAY
     Route: 048
  5. SOLIAN [Concomitant]

REACTIONS (5)
  - ARRHYTHMIA [None]
  - ASTHENIA [None]
  - DYSPNOEA [None]
  - GAMMA-GLUTAMYLTRANSFERASE INCREASED [None]
  - HEPATOMEGALY [None]
